FAERS Safety Report 8428347-2 (Version None)
Quarter: 2012Q2

REPORT INFORMATION
  Report Type: 
  Country: None (occurrence: None)
  Receive Date: 20120612
  Receipt Date: 20120605
  Transmission Date: 20120825
  Serious: Yes (Death, Hospitalization, Other)
  Sender: FDA-Public Use
  Company Number: US-AMGEN-USASP2011041103

PATIENT
  Age: 63 Year
  Sex: Female
  Weight: 68.481 kg

DRUGS (6)
  1. RITUXAN [Concomitant]
     Dosage: UNK
     Dates: start: 20120319
  2. WINRHO [Concomitant]
     Route: 042
  3. NPLATE [Suspect]
     Indication: IDIOPATHIC THROMBOCYTOPENIC PURPURA
     Dosage: 60 MUG, QWK
     Route: 058
     Dates: start: 20110318, end: 20110408
  4. CORTICOSTEROIDS [Concomitant]
     Indication: IDIOPATHIC THROMBOCYTOPENIC PURPURA
     Dosage: UNK
  5. DECADRON [Concomitant]
     Dosage: 40 MG, QD
     Dates: start: 20110312, end: 20110316
  6. IMMUNE GLOBULIN (HUMAN) [Concomitant]
     Indication: IDIOPATHIC THROMBOCYTOPENIC PURPURA
     Route: 042

REACTIONS (8)
  - PROCEDURAL HYPOTENSION [None]
  - HAEMORRHAGE INTRACRANIAL [None]
  - UPPER GASTROINTESTINAL HAEMORRHAGE [None]
  - ATRIAL FIBRILLATION [None]
  - ACUTE RESPIRATORY FAILURE [None]
  - CARDIAC ARREST [None]
  - IDIOPATHIC THROMBOCYTOPENIC PURPURA [None]
  - DRUG INEFFECTIVE [None]
